FAERS Safety Report 24945679 (Version 1)
Quarter: 2025Q1

REPORT INFORMATION
  Report Type: Report from Study
  Country: CA (occurrence: CA)
  Receive Date: 20250209
  Receipt Date: 20250209
  Transmission Date: 20250408
  Serious: Yes (Hospitalization)
  Sender: DR REDDYS
  Company Number: CA-DRL-USA-CAN/2025/02/001862

PATIENT
  Sex: Female

DRUGS (1)
  1. ZOLEDRONIC ACID [Suspect]
     Active Substance: ZOLEDRONIC ACID
     Indication: Osteoporosis
     Dosage: 5MG/100ML Q1 YEAR
     Route: 065
     Dates: start: 20190513

REACTIONS (4)
  - Arthropathy [Unknown]
  - Fall [Unknown]
  - Shoulder fracture [Unknown]
  - Upper limb fracture [Unknown]
